FAERS Safety Report 16717441 (Version 2)
Quarter: 2019Q3

REPORT INFORMATION
  Report Type: Spontaneous
  Country: US (occurrence: US)
  Receive Date: 20190819
  Receipt Date: 20190820
  Transmission Date: 20191005
  Serious: No
  Sender: FDA-Public Use
  Company Number: US-BAYER-2019-152530

PATIENT

DRUGS (1)
  1. MIDOL COMPLETE [Suspect]
     Active Substance: ACETAMINOPHEN\CAFFEINE\PYRILAMINE MALEATE
     Dosage: 2 DF

REACTIONS (6)
  - Drug intolerance [Unknown]
  - Hypoaesthesia [Unknown]
  - Nausea [Unknown]
  - Vertigo [Unknown]
  - Cold sweat [Unknown]
  - Muscle spasms [Unknown]
